FAERS Safety Report 9343622 (Version 2)
Quarter: 2013Q4

REPORT INFORMATION
  Report Type: Spontaneous
  Country: GB (occurrence: None)
  Receive Date: 20130610
  Receipt Date: 20131112
  Transmission Date: 20140711
  Serious: Yes (Life-Threatening, Hospitalization, Disabling, Other)
  Sender: FDA-Public Use
  Company Number: AUR-APL-2013-04689

PATIENT
  Age: 77 Year
  Sex: Female
  Weight: 61.4 kg

DRUGS (3)
  1. GABAPENTIN (GABAPENTIN) [Suspect]
     Indication: ESSENTIAL TREMOR
     Dosage: 100 MG, 3 IN 1 D
     Route: 048
     Dates: start: 20121001, end: 20121018
  2. LEVOCETIRIZINE (LEVOCETIRIZINE) [Concomitant]
  3. PROPRANOLOL (PROPRANOLOL) [Concomitant]

REACTIONS (2)
  - Cholestasis [None]
  - Jaundice [None]
